FAERS Safety Report 24137047 (Version 5)
Quarter: 2024Q3

REPORT INFORMATION
  Report Type: Spontaneous
  Country: GB (occurrence: GB)
  Receive Date: 20240725
  Receipt Date: 20240930
  Transmission Date: 20241016
  Serious: Yes (Congenital Anomaly)
  Sender: NOVARTIS
  Company Number: GB-002147023-NVSC2024GB149330

PATIENT

DRUGS (1)
  1. KESIMPTA [Suspect]
     Active Substance: OFATUMUMAB
     Indication: Foetal exposure during pregnancy
     Dosage: UNK (MATERNAL EXPOSURE DURING PREGNANCY, TRANSPLACENTAL)
     Route: 065

REACTIONS (2)
  - Cytogenetic abnormality [Unknown]
  - Foetal exposure during pregnancy [Unknown]
